FAERS Safety Report 11059310 (Version 2)
Quarter: 2015Q2

REPORT INFORMATION
  Report Type: Report from Study
  Country: BR (occurrence: BR)
  Receive Date: 20150423
  Receipt Date: 20150521
  Transmission Date: 20150821
  Serious: Yes (Hospitalization, Other)
  Sender: FDA-Public Use
  Company Number: PHHY2015BR046831

PATIENT
  Sex: Male
  Weight: 35 kg

DRUGS (9)
  1. ACICLOVIR [Concomitant]
     Active Substance: ACYCLOVIR
     Indication: ANTIBIOTIC PROPHYLAXIS
     Dosage: 1 DF, TID
     Route: 048
     Dates: start: 20150112
  2. EXJADE [Suspect]
     Active Substance: DEFERASIROX
     Indication: THALASSAEMIA
     Dosage: 1 DF, QD/ (AT NIGHT)
     Route: 048
     Dates: end: 201501
  3. OMEPRAZOLE. [Concomitant]
     Active Substance: OMEPRAZOLE
     Indication: GASTRIC DISORDER
     Dosage: 1 DF, BID
     Route: 048
     Dates: start: 20150112
  4. VARFARINA [Concomitant]
     Indication: INTRACARDIAC THROMBUS
     Dosage: 1 DF, QD
     Route: 048
     Dates: start: 201105, end: 201501
  5. BACTRIM [Concomitant]
     Active Substance: SULFAMETHOXAZOLE\TRIMETHOPRIM
     Indication: ANTIBIOTIC PROPHYLAXIS
     Dosage: 2 DF, QD (ON MONDAY AND TUESDAY)
     Route: 048
     Dates: start: 20150115
  6. AMOXICILLIN. [Concomitant]
     Active Substance: AMOXICILLIN
     Indication: ANTIBIOTIC PROPHYLAXIS
     Dosage: 2 DF, QD
     Route: 048
     Dates: start: 20150115
  7. MICOFENOLATO MOFETIL [Concomitant]
     Indication: IMMUNOSUPPRESSION
     Dosage: 2 DF, QD
     Route: 048
     Dates: start: 20150324
  8. FLUCONAZOL [Concomitant]
     Active Substance: FLUCONAZOLE
     Indication: INFECTION PROPHYLAXIS
     Dosage: 1 DF, QD
     Route: 048
     Dates: start: 201501
  9. ACIDO FOLICO//FOLIC ACID [Concomitant]
     Active Substance: FOLIC ACID
     Indication: THALASSAEMIA
     Dosage: 1 DF, QD
     Route: 048
     Dates: end: 201501

REACTIONS (4)
  - Hypertension [Recovering/Resolving]
  - Palpitations [Recovering/Resolving]
  - Seizure [Recovered/Resolved]
  - Headache [Recovered/Resolved]
